FAERS Safety Report 9015188 (Version 3)
Quarter: 2013Q1

REPORT INFORMATION
  Report Type: Spontaneous
  Country: US (occurrence: None)
  Receive Date: 20130103
  Receipt Date: 20130114
  Transmission Date: 20140127
  Serious: Yes (Other)
  Sender: FDA-Public Use
  Company Number: AUR-APL-2012-05602

PATIENT
  Age: 62 Year
  Sex: Female

DRUGS (2)
  1. PAROXETINE (PAROXETINE) [Suspect]
     Indication: ANXIETY
     Dosage: (1 D)
  2. ZOLPIDEM (ZOLPIDEM) [Suspect]
     Indication: INSOMNIA
     Dosage: 10 MG NIGHTLY

REACTIONS (13)
  - Incorrect dose administered [None]
  - Homicide [None]
  - Amnesia [None]
  - Confusional state [None]
  - Abnormal behaviour [None]
  - Speech disorder [None]
  - Intentional self-injury [None]
  - Suicide attempt [None]
  - Delirium [None]
  - Disorientation [None]
  - Consciousness fluctuating [None]
  - Dissociation [None]
  - Major depression [None]
